FAERS Safety Report 6461712-1 (Version None)
Quarter: 2009Q4

REPORT INFORMATION
  Report Type: 
  Country: None (occurrence: None)
  Receive Date: 20091123
  Receipt Date: 20091111
  Transmission Date: 20100525
  Serious: Yes (Hospitalization, Other)
  Sender: FDA-Public Use
  Company Number: 232966J09USA

PATIENT
  Age: 53 Year
  Sex: Female

DRUGS (3)
  1. REBIF [Suspect]
     Indication: MULTIPLE SCLEROSIS
  2. CYMBALTA [Suspect]
  3. TYSABRI [Concomitant]

REACTIONS (11)
  - AGGRESSION [None]
  - BALANCE DISORDER [None]
  - DEPRESSION [None]
  - DIABETES MELLITUS [None]
  - FALL [None]
  - GAIT DISTURBANCE [None]
  - MULTIPLE SCLEROSIS [None]
  - MUSCULOSKELETAL STIFFNESS [None]
  - MYDRIASIS [None]
  - PAIN [None]
  - PARAESTHESIA [None]
